FAERS Safety Report 5458083-6 (Version None)
Quarter: 2007Q3

REPORT INFORMATION
  Report Type: 
  Country: None (occurrence: None)
  Receive Date: 20070919
  Receipt Date: 20070912
  Transmission Date: 20080115
  Serious: Yes (Other)
  Sender: FDA-Public Use
  Company Number: PHEH2007US11279

PATIENT
  Age: 54 Year
  Sex: Female

DRUGS (4)
  1. ZELNORM [Suspect]
     Indication: CONSTIPATION
     Dosage: 1 TABLET, BID PRN
     Route: 048
     Dates: end: 20070407
  2. LOTREL [Concomitant]
     Indication: HYPERTENSION
     Dosage: 5MG/20 MG, QD
     Route: 048
  3. FEMHRT [Concomitant]
     Dosage: 1 TAB, QD
  4. MAXALT                                  /USA/ [Concomitant]
     Dosage: 10MG, PRN

REACTIONS (4)
  - CATHETERISATION CARDIAC [None]
  - CHEST PAIN [None]
  - CORONARY ARTERY DISEASE [None]
  - ELECTROCARDIOGRAM ABNORMAL [None]
